FAERS Safety Report 10036485 (Version 1)
Quarter: 2014Q1

REPORT INFORMATION
  Report Type: Spontaneous
  Country: BR (occurrence: BR)
  Receive Date: 20140326
  Receipt Date: 20140326
  Transmission Date: 20141002
  Serious: Yes (Hospitalization)
  Sender: FDA-Public Use
  Company Number: BR-ROCHE-1366058

PATIENT
  Sex: Female

DRUGS (3)
  1. LEXOTAN [Suspect]
     Indication: SEDATION
     Dosage: 0.5 TABLET OF 6MG PER DAY
     Route: 065
  2. RIVOTRIL [Suspect]
     Indication: PRODUCT USED FOR UNKNOWN INDICATION
     Route: 065
  3. CARBOLITHIUM [Concomitant]

REACTIONS (5)
  - Mental status changes [Unknown]
  - Drug ineffective [Unknown]
  - Blood glucose abnormal [Unknown]
  - Somnolence [Unknown]
  - Insomnia [Unknown]
